FAERS Safety Report 21691011 (Version 1)
Quarter: 2022Q4

REPORT INFORMATION
  Report Type: Other
  Country: US (occurrence: US)
  Receive Date: 20221207
  Receipt Date: 20221207
  Transmission Date: 20230112
  Serious: Yes (Hospitalization)
  Sender: FDA-Public Use
  Company Number: US-ALVOGEN-2022088741

PATIENT
  Sex: Female

DRUGS (1)
  1. LORAZEPAM [Suspect]
     Active Substance: LORAZEPAM
     Indication: Catatonia
     Dosage: STRENGTH: 1 MG

REACTIONS (4)
  - Bradycardia [Unknown]
  - Hypotension [Unknown]
  - Somnolence [Unknown]
  - Off label use [Unknown]
